FAERS Safety Report 6440020-9 (Version None)
Quarter: 2009Q4

REPORT INFORMATION
  Report Type: 
  Country: None (occurrence: None)
  Receive Date: 20091110
  Receipt Date: 20091103
  Transmission Date: 20100525
  Serious: Yes (Hospitalization)
  Sender: FDA-Public Use
  Company Number: 1000009339

PATIENT
  Age: 46 Year
  Sex: Female
  Weight: 87.5442 kg

DRUGS (11)
  1. SAVELLA [Suspect]
     Indication: FIBROMYALGIA
     Dosage: 12.5 MG (12.5 MG, 1 IN 1 D), ORAL; 25 MG (12.5 MG,2 IN 1 D), ORAL; 50 MG (25 MG,2 IN1 D), ORAL
     Route: 048
     Dates: start: 20090815, end: 20090815
  2. SAVELLA [Suspect]
     Indication: FIBROMYALGIA
     Dosage: 12.5 MG (12.5 MG, 1 IN 1 D), ORAL; 25 MG (12.5 MG,2 IN 1 D), ORAL; 50 MG (25 MG,2 IN1 D), ORAL
     Route: 048
     Dates: start: 20090816, end: 20090817
  3. SAVELLA [Suspect]
     Indication: FIBROMYALGIA
     Dosage: 12.5 MG (12.5 MG, 1 IN 1 D), ORAL; 25 MG (12.5 MG,2 IN 1 D), ORAL; 50 MG (25 MG,2 IN1 D), ORAL
     Route: 048
     Dates: start: 20090818, end: 20090821
  4. SAVELLA [Suspect]
     Indication: FIBROMYALGIA
     Dosage: 100 MG (50 MG, 2 IN 1 D), ORAL
     Route: 048
     Dates: start: 20090822, end: 20090926
  5. FLEXERIL [Concomitant]
  6. OMEPRAZOLE [Concomitant]
  7. ROZEREM [Concomitant]
  8. SEROQUEL [Concomitant]
  9. NEXIUM [Concomitant]
  10. ACETAMINOPHEN AND HYDROCODONE BITARTRATE [Suspect]
     Indication: FIBROMYALGIA
     Route: 048
     Dates: start: 20000801, end: 20090926
  11. ACETAMINOPHEN [Suspect]

REACTIONS (8)
  - ALANINE AMINOTRANSFERASE INCREASED [None]
  - ARTHRALGIA [None]
  - ASPARTATE AMINOTRANSFERASE INCREASED [None]
  - BLOOD ALKALINE PHOSPHATASE INCREASED [None]
  - BUNDLE BRANCH BLOCK RIGHT [None]
  - HEPATOTOXICITY [None]
  - NON-CARDIAC CHEST PAIN [None]
  - SINUS TACHYCARDIA [None]
